FAERS Safety Report 7153737-8 (Version None)
Quarter: 2010Q4

REPORT INFORMATION
  Report Type: 
  Country: None (occurrence: None)
  Receive Date: 20101213
  Receipt Date: 20101202
  Transmission Date: 20110411
  Serious: Yes (Disabling)
  Sender: FDA-Public Use
  Company Number: BR-ASTRAZENECA-2010SE37266

PATIENT
  Age: 72 Year
  Sex: Female
  Weight: 95 kg

DRUGS (5)
  1. ATACAND HCT [Suspect]
     Indication: HYPERTENSION
     Dosage: 8/12.5 MG DAILY
     Route: 048
     Dates: start: 20050101, end: 20100704
  2. ATACAND HCT [Suspect]
     Dosage: 8/12.5 MG TWO TIMES A DAY
     Route: 048
     Dates: start: 20100701, end: 20101101
  3. CRESTOR [Suspect]
     Indication: HYPERCHOLESTEROLAEMIA
     Route: 048
     Dates: start: 20100201
  4. METFORMIN HYDROCHLORIDE [Concomitant]
     Indication: DIABETES MELLITUS
     Route: 048
     Dates: start: 20090801
  5. RASILEZ [Concomitant]
     Indication: HYPERTENSION
     Route: 048
     Dates: start: 20100401

REACTIONS (5)
  - BLOOD PRESSURE INADEQUATELY CONTROLLED [None]
  - DIABETES MELLITUS [None]
  - MICROALBUMINURIA [None]
  - OSTEOARTHRITIS [None]
  - SKIN CANCER [None]
